FAERS Safety Report 7558834-0 (Version None)
Quarter: 2011Q2

REPORT INFORMATION
  Report Type: 
  Country: None (occurrence: None)
  Receive Date: 20110621
  Receipt Date: 20110607
  Transmission Date: 20111010
  Serious: Yes (Life-Threatening, Other)
  Sender: FDA-Public Use
  Company Number: US-ROCHE-783354

PATIENT

DRUGS (3)
  1. BEVACIZUMAB [Suspect]
     Indication: COLORECTAL CANCER
     Dosage: INTRAVENOUS OVER 30 - 90 MIN ON DAY 1, CYCLE-2 WEEKS, 12 CYCLES, DOSE HELD
     Route: 042
     Dates: start: 20060830
  2. OXALIPLATIN [Suspect]
     Indication: COLORECTAL CANCER
     Dosage: COLORECTAL CANCER
     Route: 042
     Dates: start: 20060830
  3. LEUCOVORIN CALCIUM [Suspect]
     Indication: COLORECTAL CANCER
     Dosage: IV OVER 2 HRS ON DAY 1
     Route: 042
     Dates: start: 20060930

REACTIONS (2)
  - RENAL FAILURE [None]
  - PROTEINURIA [None]
